FAERS Safety Report 8910611 (Version 2)
Quarter: 2013Q1

REPORT INFORMATION
  Report Type: Spontaneous
  Country: GB (occurrence: GB)
  Receive Date: 20121114
  Receipt Date: 20130327
  Transmission Date: 20140127
  Serious: Yes (Hospitalization)
  Sender: FDA-Public Use
  Company Number: GB-GLAXOSMITHKLINE-B0842432A

PATIENT
  Age: 42 Year
  Sex: Male
  Weight: 92.07 kg

DRUGS (3)
  1. LAMICTAL [Suspect]
     Dosage: 100MG PER DAY
  2. EPILIM CHRONO [Suspect]
     Dosage: 800MG PER DAY
  3. ACTIFED [Suspect]
     Indication: NASOPHARYNGITIS
     Route: 048
     Dates: start: 20121020, end: 20121021

REACTIONS (2)
  - Epilepsy [Recovered/Resolved]
  - Drug interaction [Unknown]
